FAERS Safety Report 4611440-X (Version None)
Quarter: 2005Q1

REPORT INFORMATION
  Report Type: 
  Country: None (occurrence: None)
  Receive Date: 20050317
  Receipt Date: 20050310
  Transmission Date: 20050727
  Serious: Yes (Other)
  Sender: FDA-Public Use
  Company Number: PHNR2005AU00631

PATIENT
  Sex: Male

DRUGS (1)
  1. VOLTAREN [Suspect]
     Indication: PROSTATITIS
     Dosage: 50MG STAT THEN 1 PRN
     Route: 048
     Dates: start: 20040501, end: 20050308

REACTIONS (4)
  - CIRCULATORY COLLAPSE [None]
  - DRUG HYPERSENSITIVITY [None]
  - LOSS OF CONSCIOUSNESS [None]
  - URTICARIA [None]
